FAERS Safety Report 7792099-X (Version None)
Quarter: 2011Q4

REPORT INFORMATION
  Report Type: 
  Country: None (occurrence: None)
  Receive Date: 20111003
  Receipt Date: 20110927
  Transmission Date: 20120403
  Serious: Yes (Other)
  Sender: FDA-Public Use
  Company Number: US-AMGEN-USASP2011049994

PATIENT
  Age: 60 Year
  Sex: Female

DRUGS (3)
  1. TREXALL [Concomitant]
     Dosage: UNK
     Dates: start: 20090101
  2. ENBREL [Suspect]
     Indication: RHEUMATOID ARTHRITIS
     Dosage: 50 MG, QWK
     Dates: start: 20090801
  3. ENBREL [Suspect]
     Indication: FIBROMYALGIA

REACTIONS (7)
  - DECREASED INTEREST [None]
  - THERAPEUTIC RESPONSE DECREASED [None]
  - BACK PAIN [None]
  - PAIN IN EXTREMITY [None]
  - TREMOR [None]
  - FIBROMYALGIA [None]
  - ANXIETY [None]
